FAERS Safety Report 26211565 (Version 1)
Quarter: 2025Q4

REPORT INFORMATION
  Report Type: Spontaneous
  Country: CN (occurrence: CN)
  Receive Date: 20251230
  Receipt Date: 20251230
  Transmission Date: 20260118
  Serious: Yes (Other)
  Sender: GE HEALTHCARE
  Company Number: CN-GE HEALTHCARE-2025CSU018404

PATIENT
  Age: 77 Year
  Sex: Female
  Weight: 51 kg

DRUGS (2)
  1. OMNIPAQUE [Suspect]
     Active Substance: IOHEXOL
     Indication: Computerised tomogram head
     Dosage: UNK UNK, TOTAL
     Route: 065
     Dates: start: 20251030
  2. OMNIPAQUE [Suspect]
     Active Substance: IOHEXOL
     Indication: Arteriogram carotid

REACTIONS (5)
  - Cataract [Not Recovered/Not Resolved]
  - Retinopathy hypertensive [Not Recovered/Not Resolved]
  - Cerebral infarction [Not Recovered/Not Resolved]
  - Dry eye [Not Recovered/Not Resolved]
  - Conjunctivitis [Not Recovered/Not Resolved]

NARRATIVE: CASE EVENT DATE: 20251030
